FAERS Safety Report 10089054 (Version 1)
Quarter: 2014Q2

REPORT INFORMATION
  Report Type: Report from Study
  Country: US (occurrence: US)
  Receive Date: 20140421
  Receipt Date: 20140421
  Transmission Date: 20141212
  Serious: Yes (Other)
  Sender: FDA-Public Use
  Company Number: US-ROCHE-1387328

PATIENT
  Age: 42 Year
  Sex: Female

DRUGS (5)
  1. XOLAIR [Suspect]
     Indication: ASTHMA
     Route: 058
     Dates: start: 2013
  2. SINGULAIR [Concomitant]
  3. ADVAIR [Concomitant]
  4. LEVOSALBUTAMOL HYDROCHLORIDE [Concomitant]
  5. ZYRTEC [Concomitant]

REACTIONS (8)
  - Middle insomnia [Recovered/Resolved]
  - Claustrophobia [Recovered/Resolved]
  - Agitation [Recovered/Resolved]
  - Restlessness [Recovered/Resolved]
  - Nasopharyngitis [Recovered/Resolved]
  - Headache [Recovered/Resolved]
  - Dizziness [Recovered/Resolved]
  - Asthma [Recovered/Resolved]
